FAERS Safety Report 5258730-8 (Version None)
Quarter: 2007Q1

REPORT INFORMATION
  Report Type: 
  Country: None (occurrence: None)
  Receive Date: 20070306
  Receipt Date: 20070306
  Transmission Date: 20070707
  Serious: Yes (Death)
  Sender: FDA-Public Use
  Company Number: None

PATIENT
  Age: 55 Year
  Sex: Male
  Weight: 140 kg

DRUGS (15)
  1. CEFTRIAXONE [Suspect]
     Indication: ARTHRITIS BACTERIAL
     Dosage: 1000 MG Q24H IV
     Route: 042
     Dates: start: 20061213, end: 20061219
  2. . [Concomitant]
  3. VANCOMYCIN [Concomitant]
  4. ZOSYN [Concomitant]
  5. RANITIDINE [Concomitant]
  6. PROMETHAZINE [Concomitant]
  7. OMEPRAZOLE [Concomitant]
  8. LORATADINE [Concomitant]
  9. FLUOXETINE [Concomitant]
  10. BENADRYL [Concomitant]
  11. TEMAZEPAM [Concomitant]
  12. ,PRPHINE SA [Concomitant]
  13. APAP/OXYCODONE [Concomitant]
  14. PROPRANOLOL [Concomitant]
  15. LISINOPRIL [Concomitant]

REACTIONS (12)
  - ABDOMINAL PAIN [None]
  - ACIDOSIS [None]
  - ANAEMIA HAEMOLYTIC AUTOIMMUNE [None]
  - ARTHRITIS BACTERIAL [None]
  - BACK PAIN [None]
  - CARDIO-RESPIRATORY ARREST [None]
  - DEVICE RELATED INFECTION [None]
  - HAEMOGLOBINURIA [None]
  - HYPOTENSION [None]
  - HYPOXIA [None]
  - LIVEDO RETICULARIS [None]
  - STREPTOCOCCAL INFECTION [None]
